FAERS Safety Report 7481406-3 (Version None)
Quarter: 2011Q2

REPORT INFORMATION
  Report Type: 
  Country: None (occurrence: None)
  Receive Date: 20110516
  Receipt Date: 20110415
  Transmission Date: 20111010
  Serious: Yes (Hospitalization)
  Sender: FDA-Public Use
  Company Number: CZ-AMGEN-CZESP2011022038

PATIENT
  Age: 62 Year
  Sex: Female

DRUGS (2)
  1. TAXOTERE [Concomitant]
     Indication: BREAST CANCER
     Dosage: 153 MG, 3 TIMES/WK
     Dates: start: 20110405
  2. NEULASTA [Suspect]
     Indication: FEBRILE NEUTROPENIA
     Dosage: 6 MG, UNK
     Route: 058
     Dates: start: 20110406

REACTIONS (5)
  - DIARRHOEA [None]
  - ASTHENIA [None]
  - DEHYDRATION [None]
  - LEUKOCYTOSIS [None]
  - STOMATITIS [None]
